FAERS Safety Report 10599777 (Version 2)
Quarter: 2014Q4

REPORT INFORMATION
  Report Type: Report from Study
  Country: KR (occurrence: KR)
  Receive Date: 20141121
  Receipt Date: 20141126
  Transmission Date: 20150529
  Serious: Yes (Hospitalization)
  Sender: FDA-Public Use
  Company Number: KR-GILEAD-2014-0123563

PATIENT
  Age: 76 Year
  Sex: Female
  Weight: 51.3 kg

DRUGS (21)
  1. LASIX [Concomitant]
     Active Substance: FUROSEMIDE
  2. ULCERLMIN [Concomitant]
     Active Substance: SUCRALFATE
  3. ALDACTONE [Concomitant]
     Active Substance: SPIRONOLACTONE
  4. ENAFON [Concomitant]
  5. RESOLOR [Concomitant]
     Active Substance: PRUCALOPRIDE SUCCINATE
  6. CYMBALTA [Concomitant]
     Active Substance: DULOXETINE HYDROCHLORIDE
  7. VESICARE [Concomitant]
     Active Substance: SOLIFENACIN SUCCINATE
  8. AGIO [Concomitant]
  9. SOLETON [Concomitant]
     Active Substance: ZALTOPROFEN
  10. HARNAL [Concomitant]
     Active Substance: TAMSULOSIN HYDROCHLORIDE
  11. LAMINA-G [Concomitant]
  12. PHENIRAMIN [Concomitant]
  13. LACIDOFIL [Concomitant]
  14. TENOFOVIR DISOPROXIL FUMARATE [Suspect]
     Active Substance: TENOFOVIR DISOPROXIL FUMARATE
     Indication: CHRONIC HEPATITIS B
     Dosage: 300 MG, QD
     Route: 048
     Dates: start: 20140412
  15. NEXIUM [Concomitant]
     Active Substance: ESOMEPRAZOLE MAGNESIUM
  16. LIVACT                             /07401301/ [Concomitant]
  17. DUPHALAC [Concomitant]
     Active Substance: LACTULOSE
  18. ACTONEL EC [Concomitant]
  19. RABIET [Concomitant]
  20. SYLCON [Concomitant]
  21. MAGNESIUM OXIDE. [Concomitant]
     Active Substance: MAGNESIUM OXIDE

REACTIONS (4)
  - Spinal pain [Recovered/Resolved]
  - Nausea [Recovered/Resolved]
  - Dizziness [Recovered/Resolved]
  - Arthralgia [Recovered/Resolved]

NARRATIVE: CASE EVENT DATE: 20141105
